FAERS Safety Report 10645635 (Version 2)
Quarter: 2015Q1

REPORT INFORMATION
  Report Type: Spontaneous
  Country: FR (occurrence: None)
  Receive Date: 20141209
  Receipt Date: 20150202
  Transmission Date: 20150720
  Serious: Yes (Other)
  Sender: FDA-Public Use
  Company Number: 2014-FR-006470

PATIENT
  Age: 17 Year
  Sex: Female

DRUGS (5)
  1. XYREM [Suspect]
     Active Substance: SODIUM OXYBATE
     Indication: CATAPLEXY
     Dosage: 2.25 G, BID, ORAL?
     Route: 048
     Dates: start: 20140424, end: 20140524
  2. MODIODAL (MODAFINIL) [Concomitant]
  3. XYREM [Suspect]
     Active Substance: SODIUM OXYBATE
     Indication: NARCOLEPSY
     Dosage: 2.25 G, BID, ORAL?
     Route: 048
     Dates: start: 20140424, end: 20140524
  4. KOLBET [Suspect]
     Active Substance: IGURATIMOD
     Indication: PRODUCT USED FOR UNKNOWN INDICATION
  5. CONCERTA (METHYPHENIDATE HYDROCHLORIDE) [Concomitant]

REACTIONS (23)
  - Back pain [None]
  - Dysphagia [None]
  - Migraine [None]
  - Vertigo [None]
  - Decreased appetite [None]
  - Palpitations [None]
  - Abdominal pain upper [None]
  - Tremor [None]
  - Hypoaesthesia [None]
  - Dyspnoea [None]
  - Musculoskeletal pain [None]
  - Pyrexia [None]
  - Chest pain [None]
  - Muscle spasms [None]
  - Asthenia [None]
  - Off label use [None]
  - Body temperature decreased [None]
  - Myoclonus [None]
  - Pain in extremity [None]
  - Paraesthesia [None]
  - Muscle rigidity [None]
  - Nausea [None]
  - Somnolence [None]

NARRATIVE: CASE EVENT DATE: 20140423
